APPROVED DRUG PRODUCT: CETIRIZINE HYDROCHLORIDE
Active Ingredient: CETIRIZINE HYDROCHLORIDE
Strength: 10MG
Dosage Form/Route: TABLET, ORALLY DISINTEGRATING;ORAL
Application: A213557 | Product #001
Applicant: AUROBINDO PHARMA LTD
Approved: Sep 11, 2020 | RLD: No | RS: No | Type: OTC